FAERS Safety Report 10949247 (Version 1)
Quarter: 2015Q1

REPORT INFORMATION
  Report Type: Spontaneous
  Country: PH (occurrence: None)
  Receive Date: 20150320
  Receipt Date: 20150320
  Transmission Date: 20150721
  Serious: Yes (Hospitalization, Disabling, Other)
  Sender: FDA-Public Use
  Company Number: 2015JUB00078

PATIENT
  Age: 44 Year
  Sex: Female

DRUGS (1)
  1. PREDNISONE (PREDNISONE) [Suspect]
     Active Substance: PREDNISONE
     Indication: JUVENILE IDIOPATHIC ARTHRITIS

REACTIONS (9)
  - Osteoporosis [None]
  - Growth retardation [None]
  - Spinal deformity [None]
  - Intervertebral disc disorder [None]
  - Spinal osteoarthritis [None]
  - Cushingoid [None]
  - Finger deformity [None]
  - Epiphyses premature fusion [None]
  - Osteonecrosis [None]
